FAERS Safety Report 7932519-0 (Version None)
Quarter: 2011Q4

REPORT INFORMATION
  Report Type: 
  Country: None (occurrence: None)
  Receive Date: 20111122
  Receipt Date: 20111115
  Transmission Date: 20120403
  Serious: No
  Sender: FDA-Public Use
  Company Number: US-BIOGENIDEC-2011BI043722

PATIENT
  Sex: Female

DRUGS (3)
  1. SOLU-MEDROL [Concomitant]
     Indication: PREMEDICATION
     Route: 042
  2. TYSABRI [Suspect]
     Indication: MULTIPLE SCLEROSIS
     Route: 042
     Dates: end: 20111115
  3. BENADRYL [Concomitant]
     Indication: PREMEDICATION
     Route: 042

REACTIONS (6)
  - PRURITUS [None]
  - URTICARIA [None]
  - FLUSHING [None]
  - WHEEZING [None]
  - PARAESTHESIA [None]
  - DYSPNOEA [None]
